FAERS Safety Report 5171076-1 (Version None)
Quarter: 2006Q4

REPORT INFORMATION
  Report Type: 
  Country: None (occurrence: None)
  Receive Date: 20061213
  Receipt Date: 20061211
  Transmission Date: 20070319
  Serious: Yes (Life-Threatening, Hospitalization, Disabling, Other)
  Sender: FDA-Public Use
  Company Number: US-GLAXOSMITHKLINE-A0631163A

PATIENT
  Age: 37 Year
  Sex: Female

DRUGS (2)
  1. LAMICTAL [Suspect]
     Route: 048
  2. CYMBALTA [Concomitant]

REACTIONS (5)
  - BLOOD ETHANOL INCREASED [None]
  - COMA [None]
  - CONVULSION [None]
  - OVERDOSE [None]
  - PYREXIA [None]
